FAERS Safety Report 15293309 (Version 1)
Quarter: 2018Q3

REPORT INFORMATION
  Report Type: Report from Study
  Country: US (occurrence: US)
  Receive Date: 20180820
  Receipt Date: 20180820
  Transmission Date: 20181010
  Serious: Yes (Hospitalization, Other)
  Sender: FDA-Public Use
  Company Number: US-ROCHE-2169087

PATIENT
  Age: 46 Year
  Sex: Male

DRUGS (2)
  1. RITUXAN [Suspect]
     Active Substance: RITUXIMAB
     Dosage: ON DAY 1 AND DAY 15
     Route: 042
  2. RITUXAN [Suspect]
     Active Substance: RITUXIMAB
     Indication: RHEUMATOID ARTHRITIS
     Dosage: ONGOING: NO, ?2 DOSES?ON AN UNKNOWN DATE, HE RECEIVED SECOND RITUXIMAB DOSE  (DOSE AND FREQUENCY NOT
     Route: 042
     Dates: start: 20180720, end: 20180802

REACTIONS (3)
  - Rash [Unknown]
  - Thrombocytopenia [Recovering/Resolving]
  - Drug eruption [Recovered/Resolved]

NARRATIVE: CASE EVENT DATE: 20180720
